FAERS Safety Report 24559904 (Version 1)
Quarter: 2024Q4

REPORT INFORMATION
  Report Type: Spontaneous
  Country: US (occurrence: None)
  Receive Date: 20241028
  Receipt Date: 20241028
  Transmission Date: 20250114
  Serious: No
  Sender: Public
  Company Number: None

PATIENT
  Age: 54 Year
  Sex: Male
  Weight: 97.52 kg

DRUGS (2)
  1. CLOBETASOL [Suspect]
     Active Substance: CLOBETASOL
     Indication: Psoriasis
     Dosage: FREQUENCY : TWICE A DAY;?DOSE: APPLY TO SCALP TWICE DAILY FOR PSORIASIS
     Route: 061
     Dates: start: 202202
  2. TRIAMCINOLONE ACETONIDE [Suspect]
     Active Substance: TRIAMCINOLONE ACETONIDE
     Indication: Psoriasis
     Dosage: OTHER QUANTITY : SMALL AMOUNT;?FREQUENCY : TWICE A DAY;?
     Route: 061
     Dates: start: 202201

REACTIONS (1)
  - Hypertension [None]
